FAERS Safety Report 25604814 (Version 1)
Quarter: 2025Q3

REPORT INFORMATION
  Report Type: Spontaneous
  Country: EU (occurrence: EU)
  Receive Date: 20250725
  Receipt Date: 20250725
  Transmission Date: 20251020
  Serious: Yes (Life-Threatening, Hospitalization, Other)
  Sender: BIOGEN
  Company Number: None

PATIENT
  Age: 1 Month
  Sex: Female
  Weight: 1.71 kg

DRUGS (4)
  1. TYSABRI [Suspect]
     Active Substance: NATALIZUMAB
     Indication: Maternal exposure timing unspecified
     Dosage: 9 APPLICATIONS DURING PREGNANCY IN TOTAL
     Route: 050
     Dates: start: 20241004, end: 20250509
  2. Maltofer [Concomitant]
     Indication: Product used for unknown indication
     Dosage: 1-0-0
     Route: 050
  3. ZOLOFT [Concomitant]
     Active Substance: SERTRALINE HYDROCHLORIDE
     Indication: Product used for unknown indication
     Dosage: 1-0-0
     Route: 050
  4. Essenciale 300 (NOS) [Concomitant]
     Indication: Product used for unknown indication
     Route: 050

REACTIONS (3)
  - Foetal exposure timing unspecified [Not Recovered/Not Resolved]
  - Thrombocytopenia [Not Recovered/Not Resolved]
  - Foetal anaemia [Not Recovered/Not Resolved]
